FAERS Safety Report 5117946-1 (Version None)
Quarter: 2006Q3

REPORT INFORMATION
  Report Type: 
  Country: None (occurrence: None)
  Receive Date: 20060925
  Receipt Date: 20060911
  Transmission Date: 20061208
  Serious: No
  Sender: FDA-Public Use
  Company Number: T200601008

PATIENT
  Age: 74 Year
  Sex: Male

DRUGS (1)
  1. LIQUID BAROSPERSE (BARIUM SULFATE ) SUSPENSION [Suspect]
     Indication: BARIUM ENEMA

REACTIONS (7)
  - ABDOMINAL ABSCESS [None]
  - COLONIC HAEMATOMA [None]
  - DUODENAL PERFORATION [None]
  - EXTRAVASATION [None]
  - IATROGENIC INJURY [None]
  - INTUBATION COMPLICATION [None]
  - MYALGIA [None]
